FAERS Safety Report 8515457 (Version 3)
Quarter: 2012Q4

REPORT INFORMATION
  Report Type: 
  Country: JP (occurrence: JP)
  Receive Date: 20120417
  Receipt Date: 20120912
  Transmission Date: 20130627
  Serious: Yes (Death, Life-Threatening, Other)
  Sender: FDA-Public Use
  Company Number: JP-RANBAXY-2012RR-55531

PATIENT
  Age: 39 Year
  Sex: Male
  Weight: 100 kg

DRUGS (9)
  1. MIDAZOLAM [Suspect]
     Indication: SEDATION
     Dosage: 3 mg/hour
     Route: 042
  2. NICARDIPINE [Interacting]
     Indication: HYPERTENSION
     Dosage: 4.17 ug/kg/min
     Route: 042
  3. NICARDIPINE [Interacting]
     Indication: TACHYCARDIA
  4. DILTIAZEM [Suspect]
     Indication: HYPERTENSION
     Dosage: 4.5 ug/kg/min
     Route: 042
  5. DILTIAZEM [Suspect]
     Indication: TACHYCARDIA
  6. SEVOFLURANE [Interacting]
     Indication: MAINTENANCE OF ANAESTHESIA
     Dosage: 2%
     Route: 065
  7. THIAMYLAL SODIUM [Interacting]
     Indication: INDUCTION OF ANAESTHESIA
     Dosage: 300 mg, UNK
     Route: 065
  8. VECURONIUM BROMIDE [Interacting]
     Indication: INDUCTION OF ANAESTHESIA
     Dosage: 10 mg, UNK
     Route: 065
  9. FENTANYL [Interacting]
     Indication: INDUCTION OF ANAESTHESIA
     Dosage: 100 ug
     Route: 065

REACTIONS (2)
  - Cardiac arrest [Recovered/Resolved]
  - Drug interaction [Recovered/Resolved]
